FAERS Safety Report 4974570-9 (Version None)
Quarter: 2006Q2

REPORT INFORMATION
  Report Type: 
  Country: None (occurrence: None)
  Receive Date: 20060410
  Receipt Date: 20060321
  Transmission Date: 20061013
  Serious: Yes (Life-Threatening, Hospitalization, Other)
  Sender: FDA-Public Use
  Company Number: 2006046958

PATIENT
  Age: 60 Year
  Sex: Female

DRUGS (17)
  1. LYRICA [Suspect]
     Indication: DIABETIC NEUROPATHY
     Dosage: ORAL
     Route: 048
     Dates: start: 20060215, end: 20060301
  2. MELOXICAM (MELOXICAM) [Concomitant]
  3. HUMULIN 30/70 (INSULIN HUMAN INJECTION, ISOPHANE) [Concomitant]
  4. FUROSEMIDE [Concomitant]
  5. CITALOPRAM (CITALOPRAM) [Concomitant]
  6. NOVASEN (ACETYLSALICYLIC ACID) [Concomitant]
  7. PANTOPRAZOLE SODIUM [Concomitant]
  8. ALTACE [Concomitant]
  9. TYLENOL W/ CODEINE [Concomitant]
  10. SIMVASTATIN [Concomitant]
  11. APO-FERROUS SULFATE (FERROUS SULFATE) [Concomitant]
  12. SLOW-K [Concomitant]
  13. APO-PENTOXIFYLLINE (PENTOXIFYLLINE) [Concomitant]
  14. ATENOLOL [Concomitant]
  15. SALBUTAMOL (SALBUTAMOL) [Concomitant]
  16. SPIRONOLACTONE [Concomitant]
  17. ATACAND [Concomitant]

REACTIONS (2)
  - DYSPNOEA [None]
  - HYPERTENSION [None]
